FAERS Safety Report 6087641-3 (Version None)
Quarter: 2009Q1

REPORT INFORMATION
  Report Type: 
  Country: None (occurrence: None)
  Receive Date: 20090223
  Receipt Date: 20090219
  Transmission Date: 20090719
  Serious: Yes (Hospitalization)
  Sender: FDA-Public Use
  Company Number: US-BRISTOL-MYERS SQUIBB COMPANY-14514392

PATIENT
  Age: 79 Year
  Sex: Male

DRUGS (1)
  1. SPRYCEL [Suspect]
     Dosage: HELD ON 14FEB09 AND RESUMED ON 17FEB09
     Dates: start: 20090211

REACTIONS (2)
  - DEHYDRATION [None]
  - DIARRHOEA [None]
